FAERS Safety Report 4747037-0 (Version None)
Quarter: 2005Q3

REPORT INFORMATION
  Report Type: 
  Country: None (occurrence: None)
  Receive Date: 20050815
  Receipt Date: 20050801
  Transmission Date: 20060218
  Serious: Yes (Other)
  Sender: FDA-Public Use
  Company Number: USA0508104274

PATIENT
  Age: 74 Year
  Sex: Male

DRUGS (1)
  1. XIGRIS [Suspect]
     Indication: SEPSIS
     Dates: start: 20050730, end: 20050801

REACTIONS (3)
  - HAEMORRHAGE SUBCUTANEOUS [None]
  - SCROTAL DISORDER [None]
  - SCROTAL HAEMATOCOELE [None]
